FAERS Safety Report 22253068 (Version 1)
Quarter: 2023Q2

REPORT INFORMATION
  Report Type: Spontaneous
  Country: FR (occurrence: FR)
  Receive Date: 20230426
  Receipt Date: 20230426
  Transmission Date: 20230721
  Serious: Yes (Other)
  Sender: FDA-Public Use
  Company Number: None

PATIENT
  Age: 73 Year
  Sex: Male

DRUGS (10)
  1. SOLIFENACIN [Interacting]
     Active Substance: SOLIFENACIN
     Indication: Urinary incontinence
     Dosage: 10 MG, QD
     Route: 048
  2. FUROSEMIDE [Interacting]
     Active Substance: FUROSEMIDE
     Indication: Hypertension
     Dosage: 20 MG, QD
     Route: 048
  3. PRAMIPEXOLE DIHYDROCHLORIDE [Interacting]
     Active Substance: PRAMIPEXOLE DIHYDROCHLORIDE
     Indication: Parkinson^s disease
     Dosage: 2.1 MG, QD (0.7 MG X3/J)
     Route: 048
  4. FEBUXOSTAT [Interacting]
     Active Substance: FEBUXOSTAT
     Indication: Gout
     Dosage: UNK
     Route: 048
  5. PRAVASTATIN SODIUM [Interacting]
     Active Substance: PRAVASTATIN SODIUM
     Indication: Dyslipidaemia
     Dosage: 20 MG, QD
     Route: 048
  6. AMANTADINE HYDROCHLORIDE [Interacting]
     Active Substance: AMANTADINE HYDROCHLORIDE
     Indication: Parkinson^s disease
     Dosage: 300 MG, QD (100MG 3/J)
     Route: 048
  7. BENSERAZIDE HYDROCHLORIDE\LEVODOPA [Interacting]
     Active Substance: BENSERAZIDE HYDROCHLORIDE\LEVODOPA
     Indication: Parkinson^s disease
     Dosage: 875 MG, QD (375MG 2/J PLUS 125MGLP 1/J)
     Route: 048
  8. IRBESARTAN [Concomitant]
     Active Substance: IRBESARTAN
     Indication: Product used for unknown indication
     Dosage: UNK
     Route: 065
  9. ANETHOLTRITHION [Concomitant]
     Active Substance: ANETHOLTRITHION
     Indication: Product used for unknown indication
     Dosage: UNK
     Route: 065
  10. METFORMIN [Concomitant]
     Active Substance: METFORMIN HYDROCHLORIDE
     Indication: Product used for unknown indication
     Dosage: UNK
     Route: 065

REACTIONS (1)
  - Faecaloma [Recovered/Resolved]

NARRATIVE: CASE EVENT DATE: 20230325
